FAERS Safety Report 17034942 (Version 1)
Quarter: 2019Q4

REPORT INFORMATION
  Report Type: Spontaneous
  Country: IT (occurrence: IT)
  Receive Date: 20191115
  Receipt Date: 20191115
  Transmission Date: 20200122
  Serious: Yes (Death, Other)
  Sender: FDA-Public Use
  Company Number: IT-ROCHE-2445561

PATIENT
  Age: 43 Year
  Sex: Male

DRUGS (1)
  1. CLONAZEPAM. [Suspect]
     Active Substance: CLONAZEPAM
     Indication: PRODUCT USED FOR UNKNOWN INDICATION
     Route: 065

REACTIONS (6)
  - Pulmonary oedema [Unknown]
  - Respiratory failure [Unknown]
  - Intentional product misuse [Unknown]
  - Loss of consciousness [Unknown]
  - Fracture [Unknown]
  - Death [Fatal]
